FAERS Safety Report 6476848-9 (Version None)
Quarter: 2009Q4

REPORT INFORMATION
  Report Type: 
  Country: None (occurrence: None)
  Receive Date: 20091203
  Receipt Date: 20091203
  Transmission Date: 20100525
  Serious: Yes (Life-Threatening, Hospitalization)
  Sender: FDA-Public Use
  Company Number: None

PATIENT
  Age: 51 Year
  Sex: Female
  Weight: 81.6475 kg

DRUGS (1)
  1. SUBOXONE [Suspect]
     Indication: FIBROMYALGIA
     Dosage: 2 TABS EVERY 8 HOURS SL
     Route: 060
     Dates: start: 20081123, end: 20091127

REACTIONS (2)
  - ASPIRATION [None]
  - COMA [None]
